FAERS Safety Report 15331766 (Version 4)
Quarter: 2023Q1

REPORT INFORMATION
  Report Type: Spontaneous
  Country: US (occurrence: US)
  Receive Date: 20180829
  Receipt Date: 20230327
  Transmission Date: 20230418
  Serious: Yes (Death, Other)
  Sender: FDA-Public Use
  Company Number: US-009507513-1808USA012279

PATIENT
  Sex: Male
  Weight: 126.98 kg

DRUGS (2)
  1. JANUVIA [Suspect]
     Active Substance: SITAGLIPTIN PHOSPHATE
     Indication: Type 2 diabetes mellitus
     Dosage: 100 MG, QD
     Route: 048
     Dates: start: 20071001, end: 201608
  2. VICTOZA [Suspect]
     Active Substance: LIRAGLUTIDE
     Indication: Product used for unknown indication
     Dosage: UNK
     Route: 065
     Dates: start: 201602, end: 201608

REACTIONS (26)
  - Death [Fatal]
  - Pancreatic carcinoma metastatic [Unknown]
  - Pancreatitis [Unknown]
  - Cholangiocarcinoma [Unknown]
  - Acquired mixed hyperlipidaemia [Unknown]
  - Gastrooesophageal reflux disease [Unknown]
  - Ulcer [Unknown]
  - Large intestine polyp [Recovered/Resolved]
  - Abdominal distension [Unknown]
  - Constipation [Unknown]
  - Weight decreased [Unknown]
  - Abdominal pain [Unknown]
  - Faeces discoloured [Unknown]
  - Renal cyst [Not Recovered/Not Resolved]
  - Lipoma [Unknown]
  - Abdominal hernia [Unknown]
  - Osteoarthritis [Unknown]
  - Pleural effusion [Unknown]
  - Atelectasis [Unknown]
  - Diabetic nephropathy [Unknown]
  - Lymphadenopathy [Unknown]
  - Nervous system disorder [Unknown]
  - Sleep apnoea syndrome [Unknown]
  - Cerebrovascular accident [Unknown]
  - Developmental delay [Unknown]
  - Transient ischaemic attack [Unknown]

NARRATIVE: CASE EVENT DATE: 20070101
